FAERS Safety Report 9032459 (Version 1)
Quarter: 2013Q1

REPORT INFORMATION
  Report Type: Spontaneous
  Country: FR (occurrence: FR)
  Receive Date: 20130125
  Receipt Date: 20130125
  Transmission Date: 20140127
  Serious: Yes (Hospitalization)
  Sender: FDA-Public Use
  Company Number: FR-GLAXOSMITHKLINE-B0860520A

PATIENT
  Age: 65 Year
  Sex: Male

DRUGS (9)
  1. ARIXTRA [Suspect]
     Indication: THROMBOSIS PROPHYLAXIS
     Route: 058
     Dates: start: 20121109, end: 20121121
  2. TAHOR [Concomitant]
     Route: 048
  3. OFLOXACINE [Concomitant]
  4. DISCOTRINE [Concomitant]
     Dosage: 15MG PER DAY
     Route: 062
  5. ATARAX [Concomitant]
     Route: 048
  6. TRAMADOL [Concomitant]
  7. TEMESTA [Concomitant]
     Route: 048
  8. STILNOX [Concomitant]
     Route: 048
  9. LANTUS [Concomitant]

REACTIONS (2)
  - Haematuria [Recovering/Resolving]
  - Bladder pain [Recovering/Resolving]
